FAERS Safety Report 21266182 (Version 2)
Quarter: 2022Q3

REPORT INFORMATION
  Report Type: Report from Study
  Country: TH (occurrence: TH)
  Receive Date: 20220829
  Receipt Date: 20220912
  Transmission Date: 20221026
  Serious: Yes (Death, Other)
  Sender: FDA-Public Use
  Company Number: TH-NOVARTISPH-NVSC2022TH122803

PATIENT
  Age: 75 Year
  Sex: Female

DRUGS (4)
  1. KISQALI [Suspect]
     Active Substance: RIBOCICLIB
     Indication: Breast cancer metastatic
     Dosage: 3 DOSAGE FORM, QD (TAKING 3 WEEKS, SKIPPING 1 WEEK)
     Route: 048
     Dates: start: 20220407
  2. KISQALI [Suspect]
     Active Substance: RIBOCICLIB
     Dosage: 2 DOSAGE FORM, QD (TAKING 3 WEEKS, SKIPPING 1 WEEK)
     Route: 048
     Dates: start: 20220524
  3. KISQALI [Suspect]
     Active Substance: RIBOCICLIB
     Dosage: 2 DOSAGE FORM, QD (DAILY ? TAKING 2 WEEKS, SKIPPING 2 WEEKS)
     Route: 048
  4. KISQALI [Suspect]
     Active Substance: RIBOCICLIB
     Dosage: 2 DOSAGE FORM, QD (TAKING 2 WEEKS, SKIPPING 2 WEEKS)
     Route: 048
     Dates: start: 20220824

REACTIONS (21)
  - Abdominal distension [Fatal]
  - Liver disorder [Fatal]
  - Ascites [Fatal]
  - Blood pressure decreased [Fatal]
  - Intra-abdominal haemorrhage [Fatal]
  - Fatigue [Fatal]
  - General physical health deterioration [Fatal]
  - Drug intolerance [Unknown]
  - Somnolence [Unknown]
  - Chills [Unknown]
  - Feeding disorder [Unknown]
  - Weight decreased [Unknown]
  - Weight increased [Unknown]
  - Palpitations [Unknown]
  - Decreased appetite [Not Recovered/Not Resolved]
  - Oedema peripheral [Unknown]
  - Vomiting [Unknown]
  - Platelet count decreased [Recovering/Resolving]
  - Diarrhoea [Unknown]
  - Pyrexia [Unknown]
  - Inappropriate schedule of product administration [Unknown]

NARRATIVE: CASE EVENT DATE: 20220827
